FAERS Safety Report 8677475 (Version 9)
Quarter: 2014Q1

REPORT INFORMATION
  Report Type: Spontaneous
  Country: US (occurrence: US)
  Receive Date: 20120723
  Receipt Date: 20140326
  Transmission Date: 20141002
  Serious: Yes (Hospitalization, Other)
  Sender: FDA-Public Use
  Company Number: PHEH2007US016486

PATIENT
  Age: 67 Year
  Sex: Female
  Weight: 74.83 kg

DRUGS (66)
  1. ZOMETA [Suspect]
     Indication: NEOPLASM MALIGNANT
     Dosage: 4 MG, QMO
     Route: 041
     Dates: start: 20020725, end: 20071120
  2. ZOMETA [Suspect]
     Indication: METASTASES TO SPINE
  3. ZOMETA [Suspect]
     Indication: CALCIUM DEFICIENCY
  4. ZOMETA [Suspect]
     Indication: BREAST CANCER
  5. ZOMETA [Suspect]
     Indication: METASTASES TO BONE
  6. AROMASIN [Concomitant]
     Indication: PULMONARY MASS
     Dosage: 25 MG, QD
     Dates: start: 2000
  7. LASIX [Concomitant]
  8. CARTIA                                  /USA/ [Concomitant]
  9. SPIRONOLACTONE [Concomitant]
  10. KLOR-CON [Concomitant]
     Dosage: 10 MEQ, QD
  11. AMBIEN [Concomitant]
     Dosage: 10 MG, PRN
  12. DARVOCET-N [Concomitant]
  13. TAMOXIFEN [Concomitant]
  14. COZAAR [Concomitant]
     Dosage: 100 MG, QD
  15. LORTAB [Concomitant]
  16. ADVAIR [Concomitant]
  17. XANAX [Concomitant]
     Dosage: 0.5 MG, PRN
  18. CALTRATE +D [Concomitant]
  19. HYDROCHLOROTHIAZIDE [Concomitant]
     Dosage: 25 MG, QD
  20. CELEXA [Concomitant]
     Dosage: 40 MG, QD
  21. CRESTOR [Concomitant]
     Dosage: 110 MG, QD
  22. PROTEINASE INHIBITORS [Concomitant]
  23. IRON [Concomitant]
     Dates: start: 2001
  24. SYNTHROID [Concomitant]
     Dosage: 0.125 MG, QD
  25. B12 ^RECIP^ [Concomitant]
  26. FLONASE [Concomitant]
  27. COUMADIN ^BOOTS^ [Concomitant]
  28. K-DUR [Concomitant]
  29. RADIATION THERAPY [Concomitant]
  30. PROTONIX ^PHARMACIA^ [Concomitant]
  31. ELAVIL [Concomitant]
  32. TIAZAC [Concomitant]
  33. THERAGRAN [Concomitant]
  34. NEXIUM [Concomitant]
  35. DILANTIN W/PHENOBARBITAL [Concomitant]
  36. INSULIN [Concomitant]
  37. ACIPHEX [Concomitant]
     Dosage: 20 MG, QD
     Route: 048
     Dates: start: 20080910
  38. MACROBID [Concomitant]
     Dosage: 100 MG, QD
     Dates: start: 20081106
  39. EFFEXOR [Concomitant]
     Dosage: 75 MG, QD
     Dates: start: 20081108
  40. ZETIA [Concomitant]
     Dates: start: 20081108
  41. MIRTAZAPINE [Concomitant]
     Dosage: 30 MG,
     Dates: start: 20071022
  42. KENALOG [Concomitant]
  43. ASTELIN [Concomitant]
  44. PERIDEX [Concomitant]
  45. AMITRIPTYLINE [Concomitant]
  46. ALPRAZOLAM [Concomitant]
  47. ALBUTEROL [Concomitant]
  48. CITRICAL [Concomitant]
  49. CENTRUM [Concomitant]
  50. FUROSEMIDE [Concomitant]
  51. VIOXX [Concomitant]
  52. REQUIP [Concomitant]
  53. FELDENE [Concomitant]
  54. BABY ASPIRIN [Concomitant]
  55. BLOOD TRANSFUSION, AUXILIARY PRODUCTS [Concomitant]
  56. ZAROXOLYN [Concomitant]
  57. PROTONIX ^PHARMACIA^ [Concomitant]
  58. ZYLOPRIM [Concomitant]
  59. CITALOPRAM [Concomitant]
  60. VITAMIN C AND E [Concomitant]
  61. LORCET [Concomitant]
  62. MILK OF MAGNESIA [Concomitant]
  63. ZOFRAN [Concomitant]
  64. PRAVASTATIN SODIUM [Concomitant]
  65. SYNVISC [Concomitant]
  66. PROPOXYPHENE HCL AND ACETAMINOPHEN [Concomitant]

REACTIONS (105)
  - Intervertebral disc degeneration [Unknown]
  - Scoliosis [Unknown]
  - Radiculopathy [Unknown]
  - Spinal column stenosis [Unknown]
  - Pneumonia [Unknown]
  - Osteonecrosis [Unknown]
  - Osteonecrosis of jaw [Unknown]
  - Hypertrophic cardiomyopathy [Unknown]
  - Brain neoplasm [Unknown]
  - Central nervous system lesion [Unknown]
  - Chronic obstructive pulmonary disease [Unknown]
  - Myopathy [Recovering/Resolving]
  - Abasia [Unknown]
  - Asthenia [Recovering/Resolving]
  - Osteoarthritis [Unknown]
  - Musculoskeletal pain [Recovering/Resolving]
  - Gastrooesophageal reflux disease [Unknown]
  - Depression [Unknown]
  - Hypertension [Unknown]
  - Pain [Recovering/Resolving]
  - Emotional distress [Unknown]
  - Anxiety [Unknown]
  - Tooth fracture [Unknown]
  - Hypophagia [Unknown]
  - Injury [Unknown]
  - Anhedonia [Unknown]
  - Deformity [Unknown]
  - Discomfort [Unknown]
  - Hyperkeratosis [Unknown]
  - Tooth loss [Unknown]
  - Primary sequestrum [Unknown]
  - Dental fistula [Unknown]
  - Swelling [Unknown]
  - Tenderness [Unknown]
  - Mouth ulceration [Unknown]
  - Bone disorder [Unknown]
  - Purulent discharge [Unknown]
  - Thyroid cancer [Unknown]
  - Goitre [Unknown]
  - Dysphagia [Recovered/Resolved]
  - Osteosclerosis [Unknown]
  - Blood calcium increased [Unknown]
  - Glucose tolerance impaired [Unknown]
  - Stomatitis [Unknown]
  - Acute sinusitis [Unknown]
  - Paranasal sinus hypersecretion [Unknown]
  - Dyspnoea [Unknown]
  - Cyst [Unknown]
  - Headache [Unknown]
  - Atrial fibrillation [Unknown]
  - Rhinitis allergic [Unknown]
  - Viral infection [Unknown]
  - Otorrhoea [Unknown]
  - Hypocalcaemia [Unknown]
  - Hyperglycaemia [Unknown]
  - Balance disorder [Unknown]
  - Pain in jaw [Unknown]
  - Joint swelling [Unknown]
  - Arthralgia [Unknown]
  - Infection [Unknown]
  - Bile duct stenosis [Unknown]
  - Stomatitis necrotising [Unknown]
  - Cardiac failure [Unknown]
  - Laryngeal oedema [Unknown]
  - Mitral valve incompetence [Unknown]
  - Hepatic cyst [Unknown]
  - Haemorrhoids [Unknown]
  - Large intestine polyp [Unknown]
  - Syncope [Unknown]
  - Diverticulum intestinal [Unknown]
  - Foot deformity [Unknown]
  - Spinal osteoarthritis [Unknown]
  - Neuropathy peripheral [Unknown]
  - Hyperlipidaemia [Unknown]
  - Joint effusion [Unknown]
  - Atelectasis [Unknown]
  - Pulmonary mass [Unknown]
  - Hypothyroidism [Unknown]
  - Bundle branch block left [Unknown]
  - Hiatus hernia [Unknown]
  - Granulomatous liver disease [Unknown]
  - Cerebral atrophy [Unknown]
  - Encephalomalacia [Unknown]
  - Urinary tract infection [Unknown]
  - Coronary artery disease [Unknown]
  - Circulatory collapse [Unknown]
  - Dyskinesia oesophageal [Unknown]
  - Joint dislocation [Unknown]
  - Emphysema [Unknown]
  - Facet joint syndrome [Unknown]
  - Kyphosis [Unknown]
  - Lung disorder [Unknown]
  - Fall [Unknown]
  - Scapula fracture [Unknown]
  - Visual field defect [Unknown]
  - Histoplasmosis [Unknown]
  - Ventricular hypertrophy [Unknown]
  - Tricuspid valve incompetence [Unknown]
  - Cerebrovascular accident [Unknown]
  - Lymphoedema [Unknown]
  - Necrosis [Unknown]
  - Lymphocytic infiltration [Unknown]
  - Vasculitis cerebral [Unknown]
  - Amnesia [Unknown]
  - Presyncope [Unknown]
